FAERS Safety Report 4383162-4 (Version None)
Quarter: 2004Q2

REPORT INFORMATION
  Report Type: 
  Country: None (occurrence: None)
  Receive Date: 20040622
  Receipt Date: 20040622
  Transmission Date: 20050107
  Serious: Yes (Other)
  Sender: FDA-Public Use
  Company Number: None

PATIENT
  Age: 40 Year
  Sex: Female

DRUGS (3)
  1. MINOCIN [Suspect]
     Indication: ACNE
     Dosage: 100 MG PO BID
     Route: 048
     Dates: end: 20030501
  2. SYNTHROID [Concomitant]
  3. ORAL CONTRACEPTIVE [Concomitant]

REACTIONS (3)
  - BONE DISORDER [None]
  - SKIN DISCOLOURATION [None]
  - TOOTH DISCOLOURATION [None]
